FAERS Safety Report 8009252-2 (Version None)
Quarter: 2011Q4

REPORT INFORMATION
  Report Type: 
  Country: None (occurrence: None)
  Receive Date: 20111227
  Receipt Date: 20111221
  Transmission Date: 20120403
  Serious: Yes (Disabling)
  Sender: FDA-Public Use
  Company Number: GXKR2011DE003650

PATIENT

DRUGS (6)
  1. METOPROLOL SUCCINATE [Concomitant]
     Indication: HYPERTENSION
     Route: 048
     Dates: start: 19900101
  2. SORTIS ^GOEDECKE^ [Concomitant]
     Indication: HYPERLIPIDAEMIA
     Route: 048
     Dates: start: 20000101
  3. ACETYLSALICYLIC ACID SRT [Concomitant]
     Indication: CORONARY ARTERY DISEASE
     Dosage: 100 MG, UNK
     Route: 048
     Dates: start: 19900101
  4. DOXAZOSIN MESYLATE [Suspect]
     Indication: HYPERTENSION
     Route: 048
     Dates: start: 20101001
  5. SORTIS ^GOEDECKE^ [Concomitant]
     Indication: CORONARY ARTERY DISEASE
  6. METOPROLOL SUCCINATE [Concomitant]
     Indication: CORONARY ARTERY DISEASE

REACTIONS (4)
  - CHOLESTASIS [None]
  - JAUNDICE [None]
  - SWELLING FACE [None]
  - LIVER FUNCTION TEST ABNORMAL [None]
